FAERS Safety Report 25318013 (Version 1)
Quarter: 2025Q2

REPORT INFORMATION
  Report Type: Report from Study
  Country: US (occurrence: US)
  Receive Date: 20250515
  Receipt Date: 20250515
  Transmission Date: 20250717
  Serious: Yes (Death)
  Sender: BAYER HEALTHCARE PHARMACEUTICALS INC.
  Company Number: US-BAYER-2025A064891

PATIENT
  Age: 78 Year
  Sex: Female
  Weight: 36.735 kg

DRUGS (46)
  1. ADEMPAS [Suspect]
     Active Substance: RIOCIGUAT
     Indication: Pulmonary arterial hypertension
     Dates: start: 20220516
  2. ADEMPAS [Suspect]
     Active Substance: RIOCIGUAT
     Indication: Pulmonary arterial hypertension
     Dosage: 2.5 MG, TID
     Route: 048
  3. VALACYCLOVIR [Concomitant]
     Active Substance: VALACYCLOVIR HYDROCHLORIDE
  4. GAS-X [Concomitant]
     Active Substance: DIMETHICONE
  5. VITAMIN C [Concomitant]
     Active Substance: ASCORBIC ACID
  6. FUROSEMIDE [Concomitant]
     Active Substance: FUROSEMIDE
  7. ANORO ELLIPTA [Concomitant]
     Active Substance: UMECLIDINIUM BROMIDE\VILANTEROL TRIFENATATE
  8. IBANDRONATE SODIUM [Concomitant]
     Active Substance: IBANDRONATE SODIUM
  9. PREDNISONE [Concomitant]
     Active Substance: PREDNISONE
  10. LUNESTA [Concomitant]
     Active Substance: ESZOPICLONE
  11. SYNTHROID [Concomitant]
     Active Substance: LEVOTHYROXINE SODIUM
  12. IMODIUM [Concomitant]
     Active Substance: LOPERAMIDE HYDROCHLORIDE
  13. PROLIA [Concomitant]
     Active Substance: DENOSUMAB
  14. POTASSIUM CHLORIDE [Concomitant]
     Active Substance: POTASSIUM CHLORIDE
  15. LEVOTHYROXINE SODIUM [Concomitant]
     Active Substance: LEVOTHYROXINE SODIUM
  16. TRIAMCINOLONE ACETONIDE [Concomitant]
     Active Substance: TRIAMCINOLONE ACETONIDE
  17. COLLAGENASE SANTYL [Concomitant]
     Active Substance: COLLAGENASE CLOSTRIDIUM HISTOLYTICUM
  18. XARELTO [Concomitant]
     Active Substance: RIVAROXABAN
  19. MYCOPHENOLATE MOFETIL [Concomitant]
     Active Substance: MYCOPHENOLATE MOFETIL
  20. CLOBETASOL PROPIONATE [Concomitant]
     Active Substance: CLOBETASOL PROPIONATE
  21. HYDROCHLOROTHIAZIDE\TRIAMTERENE [Concomitant]
     Active Substance: HYDROCHLOROTHIAZIDE\TRIAMTERENE
  22. BIOTIN [Concomitant]
     Active Substance: BIOTIN
  23. ESOMEPRAZOLE MAGNESIUM [Concomitant]
     Active Substance: ESOMEPRAZOLE MAGNESIUM
  24. LASIX [Concomitant]
     Active Substance: FUROSEMIDE
  25. LORAZEPAM [Concomitant]
     Active Substance: LORAZEPAM
  26. VITAMIN D3 [Concomitant]
     Active Substance: CHOLECALCIFEROL
  27. CIALIS [Concomitant]
     Active Substance: TADALAFIL
  28. KLOR-CON M20 [Concomitant]
     Active Substance: POTASSIUM CHLORIDE
  29. NEXIUM [Concomitant]
     Active Substance: ESOMEPRAZOLE MAGNESIUM
  30. CELLCEPT [Concomitant]
     Active Substance: MYCOPHENOLATE MOFETIL
  31. TRAMADOL HCL [Concomitant]
     Active Substance: TRAMADOL HYDROCHLORIDE
  32. AZELASTINE HYDROCHLORIDE [Concomitant]
     Active Substance: AZELASTINE HYDROCHLORIDE
  33. TYVASO [Concomitant]
     Active Substance: TREPROSTINIL
  34. WINREVAIR [Concomitant]
     Active Substance: SOTATERCEPT-CSRK
  35. ASCORBIC ACID [Concomitant]
     Active Substance: ASCORBIC ACID
  36. ESZOPICLONE [Concomitant]
     Active Substance: ESZOPICLONE
  37. ESTRADIOL [Concomitant]
     Active Substance: ESTRADIOL
  38. CALCIUM [Concomitant]
     Active Substance: CALCIUM
  39. SPIRONOLACTONE [Concomitant]
     Active Substance: SPIRONOLACTONE
  40. OXYGEN [Concomitant]
     Active Substance: OXYGEN
  41. CLAVULANATE POTASSIUM [Concomitant]
     Active Substance: CLAVULANATE POTASSIUM
  42. CALCIUM [Concomitant]
     Active Substance: CALCIUM
  43. RISEDRONATE SODIUM [Concomitant]
     Active Substance: RISEDRONATE SODIUM
  44. ESCITALOPRAM OXALATE [Concomitant]
     Active Substance: ESCITALOPRAM OXALATE
  45. TYLENOL [Concomitant]
     Active Substance: ACETAMINOPHEN
  46. ALYQ [Concomitant]
     Active Substance: TADALAFIL

REACTIONS (1)
  - Death [Fatal]

NARRATIVE: CASE EVENT DATE: 20250505
